FAERS Safety Report 5676743-9 (Version None)
Quarter: 2008Q1

REPORT INFORMATION
  Report Type: 
  Country: None (occurrence: None)
  Receive Date: 20080318
  Receipt Date: 20080305
  Transmission Date: 20080703
  Serious: Yes (Death, Disabling)
  Sender: FDA-Public Use
  Company Number: 100#08#2008-01167

PATIENT
  Age: 28 Year
  Sex: Female

DRUGS (3)
  1. METHOTREXATE [Suspect]
     Indication: T-CELL LYMPHOMA RECURRENT
     Dosage: 12 MG; EIGHT SESSIONS
     Route: 037
  2. CYTARABINE [Suspect]
     Indication: T-CELL LYMPHOMA RECURRENT
     Dosage: 30 MG; EIGHT SESSIONS
     Route: 037
  3. HYDROCORTISONE [Concomitant]
     Indication: T-CELL LYMPHOMA RECURRENT
     Dosage: 24 MG; EIGHT SESSIONS
     Route: 037

REACTIONS (8)
  - DRUG TOXICITY [None]
  - FAECAL INCONTINENCE [None]
  - INFECTION [None]
  - MYELOPATHY [None]
  - NEUROLOGICAL SYMPTOM [None]
  - SEPTIC SHOCK [None]
  - SUBACUTE COMBINED CORD DEGENERATION [None]
  - URINARY INCONTINENCE [None]
